FAERS Safety Report 6151180-1 (Version None)
Quarter: 2009Q2

REPORT INFORMATION
  Report Type: 
  Country: None (occurrence: None)
  Receive Date: 20090410
  Receipt Date: 20090331
  Transmission Date: 20091009
  Serious: Yes (Hospitalization)
  Sender: FDA-Public Use
  Company Number: BE-JNJFOC-20090400555

PATIENT
  Age: 85 Year
  Sex: Female
  Weight: 85 kg

DRUGS (4)
  1. REMICADE [Suspect]
     Indication: HYPERTENSION
     Route: 042
  2. REMICADE [Suspect]
     Indication: RHEUMATOID ARTHRITIS
     Route: 042
  3. DICLOFENAC [Suspect]
     Indication: HYPERTENSION
  4. DICLOFENAC [Suspect]
     Indication: RHEUMATOID ARTHRITIS

REACTIONS (1)
  - ALVEOLITIS ALLERGIC [None]
